FAERS Safety Report 9459404 (Version 4)
Quarter: 2014Q1

REPORT INFORMATION
  Report Type: Spontaneous
  Country: JP (occurrence: JP)
  Receive Date: 20130815
  Receipt Date: 20140206
  Transmission Date: 20141002
  Serious: Yes (Other)
  Sender: FDA-Public Use
  Company Number: JP-AMGEN-JPNSP2013057117

PATIENT
  Age: 63 Year
  Sex: Female
  Weight: 57 kg

DRUGS (2)
  1. RANMARK [Suspect]
     Indication: METASTASES TO BONE
     Dosage: 120 MG, QD
     Route: 058
     Dates: start: 20120731, end: 20130402
  2. FASLODEX [Concomitant]
     Indication: BREAST CANCER
     Dosage: UNKNOWN
     Route: 065
     Dates: end: 20130425

REACTIONS (2)
  - Osteomyelitis [Recovering/Resolving]
  - Osteonecrosis of jaw [Recovering/Resolving]
